FAERS Safety Report 9290433 (Version 5)
Quarter: 2014Q1

REPORT INFORMATION
  Report Type: Spontaneous
  Country: US (occurrence: US)
  Receive Date: 20130515
  Receipt Date: 20140317
  Transmission Date: 20141002
  Serious: No
  Sender: FDA-Public Use
  Company Number: US-PFIZER INC-2013139093

PATIENT
  Age: 64 Year
  Sex: Female
  Weight: 63.04 kg

DRUGS (26)
  1. LYRICA [Suspect]
     Indication: FIBROMYALGIA
     Dosage: 50 MG, 2X/DAY
     Route: 048
     Dates: start: 20130426, end: 20130506
  2. LYRICA [Suspect]
     Indication: NEUROPATHY PERIPHERAL
     Dosage: 100 MG, 2X/DAY
     Route: 048
     Dates: start: 2013
  3. LYRICA [Suspect]
     Dosage: 75 MG, 2X/DAY
     Route: 048
  4. LYRICA [Suspect]
     Dosage: 100 MG, DAILY
     Route: 048
     Dates: start: 20130426, end: 20130506
  5. SIMVASTATIN [Concomitant]
     Indication: HYPERTENSION
     Dosage: 40 MG, DAILY
  6. RANITIDINE [Concomitant]
     Dosage: 300 MG, 2X/DAY
  7. CARISOPRODOL [Concomitant]
     Dosage: 350 MG, 2-3 X DAILY
  8. REQUIP XL [Concomitant]
     Indication: RESTLESS LEGS SYNDROME
     Dosage: 2 MG, DAILY
  9. TRAMADOL [Concomitant]
     Dosage: 50 MG, DAILY
  10. LOSARTAN [Concomitant]
     Dosage: 100 MG, DAILY
  11. ZOLPIDEM TARTRATE [Concomitant]
     Dosage: 10 MG, 2X/DAY
  12. OXYCODONE [Concomitant]
     Dosage: 10 MG, 4X/DAY
  13. SYNTHROID [Concomitant]
     Indication: THYROID DISORDER
     Dosage: 25 UG, DAILY
  14. NITRO-SPRAY [Concomitant]
     Dosage: 400 UG, AS NEEDED
  15. PROMETHAZINE [Concomitant]
     Dosage: 25 MG, AS NEEDED
  16. HYDROXINE [Concomitant]
     Dosage: 25 MG, AS NEEDED
  17. TRAZODONE [Concomitant]
     Dosage: 100 MG, AS NEEDED
  18. CLONAZEPAM [Concomitant]
     Dosage: 0.5 MG, AS NEEDED
  19. METOPROLOL [Concomitant]
     Dosage: 25MG, UNK
  20. ASA [Concomitant]
     Dosage: 325 MG, DAILY
  21. POTASSIUM [Concomitant]
     Dosage: UNK, DAILY
  22. ZINC [Concomitant]
     Dosage: UNK, DAILY
  23. MAGNESIUM [Concomitant]
     Dosage: UNK, DAILY
  24. FISH OIL [Concomitant]
     Dosage: 4000 IU, DAILY
  25. CALCIUM [Concomitant]
     Dosage: 5000 IU, DAILY
  26. ESTROGEN [Concomitant]
     Dosage: UNK, AS NEEDED

REACTIONS (6)
  - Drug intolerance [Unknown]
  - Somnolence [Recovered/Resolved]
  - Dizziness [Recovered/Resolved]
  - Balance disorder [Recovered/Resolved]
  - Diplopia [Unknown]
  - Vision blurred [Unknown]
